FAERS Safety Report 5925558-2 (Version None)
Quarter: 2008Q4

REPORT INFORMATION
  Report Type: 
  Country: None (occurrence: None)
  Receive Date: 20081021
  Receipt Date: 20081015
  Transmission Date: 20090506
  Serious: Yes (Death, Other)
  Sender: FDA-Public Use
  Company Number: PHHY2008JP24845

PATIENT
  Age: 24 Year
  Sex: Male
  Weight: 57 kg

DRUGS (24)
  1. SANDIMMUNE [Suspect]
     Dosage: UNK
     Route: 042
  2. AMPHOTERICIN B [Suspect]
     Indication: PNEUMONIA
     Dosage: 50 MG/DAY
     Route: 042
     Dates: start: 20070824, end: 20070901
  3. AMPHOTERICIN B [Suspect]
     Indication: FUNGAL INFECTION
     Dosage: 50 MG/DAY
     Route: 042
     Dates: start: 20070817, end: 20070819
  4. AMPHOTERICIN B [Suspect]
     Dosage: 100 MG/DAY
     Route: 042
     Dates: start: 20070811, end: 20070814
  5. AMPHOTERICIN B [Suspect]
     Dosage: 75 MG/DAY
     Route: 042
     Dates: start: 20070807, end: 20070810
  6. AMPHOTERICIN B [Suspect]
     Dosage: 50 MG/DAY
     Route: 042
     Dates: start: 20070803, end: 20070806
  7. ITRIZOLE [Concomitant]
     Dosage: 200 MG/DAY
     Route: 048
     Dates: end: 20070723
  8. MEROPEN [Concomitant]
     Dosage: 1.5 G/DAY
     Route: 042
     Dates: end: 20070806
  9. VANCOMYCIN HYDROCHLORIDE [Concomitant]
     Dosage: 2 G/DAY
     Route: 042
     Dates: start: 20070817, end: 20070829
  10. VANCOMYCIN HYDROCHLORIDE [Concomitant]
     Dosage: 1 G/DAY
     Route: 042
  11. ACYCLOVIR [Concomitant]
     Dosage: 250 MG/DAY
     Route: 042
     Dates: end: 20070823
  12. ACYCLOVIR [Concomitant]
     Dosage: 250 MG/DAY
     Route: 042
     Dates: start: 20070828
  13. POTASSIUM CHLORIDE [Concomitant]
     Route: 042
  14. MAGNESIUM SULFATE [Concomitant]
     Route: 042
  15. VFEND [Concomitant]
     Dosage: 400 MG/DAY
     Route: 042
     Dates: start: 20070723, end: 20070802
  16. VFEND [Concomitant]
     Dosage: 200 MG/DAY
     Route: 042
     Dates: start: 20070803, end: 20070803
  17. METHOTREXATE [Concomitant]
     Dosage: 10 MG/DAY
     Route: 042
     Dates: start: 20070803, end: 20070803
  18. FUNGUARD [Concomitant]
     Dosage: 100 MG/DAY
     Route: 042
     Dates: start: 20070821, end: 20070823
  19. SOLU-MEDROL [Concomitant]
     Dosage: 1000 MG/DAY
     Route: 042
     Dates: start: 20070824, end: 20070826
  20. SOLU-MEDROL [Concomitant]
     Dosage: 500 MG/DAY
     Route: 042
     Dates: start: 20070827, end: 20070829
  21. SOLU-MEDROL [Concomitant]
     Dosage: 250 MG/DAY
     Route: 042
     Dates: start: 20070830
  22. ELASPOL [Concomitant]
     Dosage: 300 MG/DAY
     Route: 042
     Dates: start: 20070825
  23. RED BLOOD CELLS [Concomitant]
  24. PLATELETS [Concomitant]

REACTIONS (7)
  - ACUTE MYELOID LEUKAEMIA RECURRENT [None]
  - ANAEMIA [None]
  - BLOOD BILIRUBIN INCREASED [None]
  - HYPOKALAEMIA [None]
  - PULMONARY ALVEOLAR HAEMORRHAGE [None]
  - PYREXIA [None]
  - RENAL IMPAIRMENT [None]
